FAERS Safety Report 8418745-5 (Version None)
Quarter: 2012Q2

REPORT INFORMATION
  Report Type: 
  Country: None (occurrence: None)
  Receive Date: 20120607
  Receipt Date: 20120601
  Transmission Date: 20120825
  Serious: Yes (Hospitalization, Other)
  Sender: FDA-Public Use
  Company Number: US-ASTRAZENECA-2012SE11837

PATIENT
  Age: 61 Year
  Sex: Female
  Weight: 76.7 kg

DRUGS (10)
  1. ACTOS [Suspect]
     Indication: DIABETES MELLITUS
     Route: 048
     Dates: start: 20070621
  2. GLIPIZIDE [Concomitant]
     Indication: TYPE 2 DIABETES MELLITUS
  3. CRESTOR [Suspect]
     Route: 048
  4. CIPROFLOXACIN HCL [Concomitant]
     Dosage: 500
     Dates: start: 20110722, end: 20110727
  5. CRESTOR [Suspect]
     Route: 048
  6. HYDROCHLOROTHIAZIDE [Concomitant]
     Indication: HYPERTENSION
     Dosage: 25
     Route: 048
  7. LISINOPRIL [Concomitant]
     Indication: HYPERTENSION
     Route: 048
  8. CRESTOR [Suspect]
     Indication: BLOOD CHOLESTEROL INCREASED
     Route: 048
     Dates: start: 20070621
  9. LEVOXYL [Concomitant]
     Indication: HYPOTHYROIDISM
     Route: 048
  10. METFORMIN HCL [Concomitant]
     Indication: DIABETES MELLITUS

REACTIONS (8)
  - THYROID CANCER [None]
  - TENDON RUPTURE [None]
  - MYALGIA [None]
  - HYPERTENSION [None]
  - LIPIDS INCREASED [None]
  - LABORATORY TEST ABNORMAL [None]
  - MUSCLE SPASMS [None]
  - TYPE 2 DIABETES MELLITUS [None]
